FAERS Safety Report 23358465 (Version 1)
Quarter: 2023Q4

REPORT INFORMATION
  Report Type: Spontaneous
  Country: US (occurrence: None)
  Receive Date: 20231230
  Receipt Date: 20231230
  Transmission Date: 20240109
  Serious: Yes (Hospitalization)
  Sender: FDA-Public Use
  Company Number: None

PATIENT
  Age: 52 Year
  Sex: Female
  Weight: 61.23 kg

DRUGS (2)
  1. BUDESONIDE [Suspect]
     Active Substance: BUDESONIDE
     Indication: Sinusitis
     Dosage: FREQUENCY : TWICE A DAY;?
     Route: 045
     Dates: start: 20231211, end: 20231225
  2. BUDESONIDE [Suspect]
     Active Substance: BUDESONIDE
     Indication: Upper-airway cough syndrome

REACTIONS (3)
  - Asthma [None]
  - Bronchospasm [None]
  - Product label issue [None]

NARRATIVE: CASE EVENT DATE: 20231225
